FAERS Safety Report 9308463 (Version 1)
Quarter: 2013Q2

REPORT INFORMATION
  Report Type: Spontaneous
  Country: FR (occurrence: FR)
  Receive Date: 20130524
  Receipt Date: 20130524
  Transmission Date: 20140414
  Serious: Yes (Hospitalization)
  Sender: FDA-Public Use
  Company Number: FR-BRISTOL-MYERS SQUIBB COMPANY-18910513

PATIENT
  Age: 50 Year
  Sex: Male

DRUGS (6)
  1. MANTADIX CAPS 100 MG [Suspect]
     Route: 048
     Dates: end: 20130124
  2. SINEMET LP [Suspect]
     Dosage: IN 2012:DOSE-1TAB AND HALF/D
  3. REQUIP [Suspect]
     Dosage: DOSE DECREASED-4MG/D?IN 2012:DOSE-1TAB AND HALF/D
     Dates: start: 2011, end: 20130124
  4. STALEVO [Suspect]
     Dosage: IN 2012:DOSE-1TAB AND HALF/D
     Route: 048
  5. CLOZAPINE [Suspect]
     Dosage: INTER,RESUMED AT 75MG/D?2012-DOSE:11/2 TAB,25JAN13:DOSE 150 MG/D.?250MG/D:29JAN13
  6. AZILECT [Concomitant]

REACTIONS (2)
  - Delirium [Recovered/Resolved]
  - Delusion [None]
